FAERS Safety Report 4695372-7 (Version None)
Quarter: 2005Q2

REPORT INFORMATION
  Report Type: 
  Country: None (occurrence: None)
  Receive Date: 20050311
  Receipt Date: 20050311
  Transmission Date: 20051028
  Serious: Yes (Other)
  Sender: FDA-Public Use
  Company Number: None

PATIENT
  Age: 44 Year
  Sex: Female
  Weight: 48.9885 kg

DRUGS (1)
  1. GENERIC WELLBUTRIN -} HIVES [Suspect]
     Indication: DEPRESSION

REACTIONS (1)
  - URTICARIA [None]
